FAERS Safety Report 12843518 (Version 2)
Quarter: 2016Q4

REPORT INFORMATION
  Report Type: Spontaneous
  Country: US (occurrence: US)
  Receive Date: 20161013
  Receipt Date: 20161024
  Transmission Date: 20170207
  Serious: Yes (Other)
  Sender: FDA-Public Use
  Company Number: US-AMGEN-USASP2016130478

PATIENT
  Age: 69 Year
  Sex: Male
  Weight: 103.86 kg

DRUGS (1)
  1. REPATHA [Suspect]
     Active Substance: EVOLOCUMAB
     Indication: PRODUCT USED FOR UNKNOWN INDICATION
     Dosage: 140 MG/ML, Q2WK
     Route: 058
     Dates: start: 20160811, end: 20160907

REACTIONS (3)
  - Drug eruption [Recovered/Resolved]
  - Bowen^s disease [Unknown]
  - Lichenoid keratosis [Unknown]

NARRATIVE: CASE EVENT DATE: 201608
